FAERS Safety Report 9011281 (Version 1)
Quarter: 2013Q1

REPORT INFORMATION
  Report Type: Spontaneous
  Country: US (occurrence: US)
  Receive Date: 20130109
  Receipt Date: 20130109
  Transmission Date: 20140127
  Serious: Yes (Hospitalization, Other)
  Sender: FDA-Public Use
  Company Number: US-009507513-1301USA001509

PATIENT
  Sex: Female

DRUGS (6)
  1. SINGULAIR [Suspect]
  2. XOLAIR [Suspect]
  3. PREDNISOLONE [Concomitant]
  4. PREDNISONE [Concomitant]
  5. CIPRAMIL [Concomitant]
  6. [THERAPY UNSPECIFIED] [Concomitant]
     Indication: ASTHMA

REACTIONS (7)
  - Respiratory disorder [Unknown]
  - Metabolic disorder [Unknown]
  - Leukoencephalopathy [Unknown]
  - Electroencephalogram abnormal [Unknown]
  - Depression [Unknown]
  - Blood phosphorus decreased [Unknown]
  - Blood calcium decreased [Unknown]
